FAERS Safety Report 15371047 (Version 1)
Quarter: 2018Q3

REPORT INFORMATION
  Report Type: Spontaneous
  Country: US (occurrence: US)
  Receive Date: 20180905
  Receipt Date: 20180905
  Transmission Date: 20181010
  Serious: Yes (Death)
  Sender: FDA-Public Use
  Company Number: None

PATIENT
  Age: 57 Year
  Sex: Female

DRUGS (27)
  1. BUDESONIDE. [Concomitant]
     Active Substance: BUDESONIDE
  2. METHYLPRED [Concomitant]
     Active Substance: METHYLPREDNISOLONE
  3. BEVESPI AEROSPHERE [Concomitant]
     Active Substance: FORMOTEROL FUMARATE\GLYCOPYRROLATE
  4. OMEPRAZOLE. [Concomitant]
     Active Substance: OMEPRAZOLE
  5. FLUTICASONE. [Concomitant]
     Active Substance: FLUTICASONE
  6. FEROSUL [Concomitant]
  7. DRONABINOL. [Concomitant]
     Active Substance: DRONABINOL
  8. MIDODRINE [Concomitant]
     Active Substance: MIDODRINE
  9. PREDNISONE. [Concomitant]
     Active Substance: PREDNISONE
  10. SILDENAFIL. [Concomitant]
     Active Substance: SILDENAFIL
  11. HYDROMET [Concomitant]
     Active Substance: HOMATROPINE METHYLBROMIDE\HYDROCODONE BITARTRATE
  12. FLUTICASONE. [Concomitant]
     Active Substance: FLUTICASONE
  13. METHYLPRED [Concomitant]
     Active Substance: METHYLPREDNISOLONE
  14. AZITHROMYCIN ANHYDROUS. [Concomitant]
     Active Substance: AZITHROMYCIN ANHYDROUS
  15. SILDENAFIL. [Suspect]
     Active Substance: SILDENAFIL
     Indication: PULMONARY ARTERIAL HYPERTENSION
     Route: 048
     Dates: start: 20171107
  16. PROAIR HFA [Concomitant]
     Active Substance: ALBUTEROL SULFATE
  17. DIGOX [Concomitant]
     Active Substance: DIGOXIN
  18. CARVEDILOL. [Concomitant]
     Active Substance: CARVEDILOL
  19. HY POL/CPM SUS [Concomitant]
  20. SYMBICORT [Concomitant]
     Active Substance: BUDESONIDE\FORMOTEROL FUMARATE DIHYDRATE
  21. SPIRONOLACT [Concomitant]
     Active Substance: SPIRONOLACTONE
  22. BENZONATATE. [Concomitant]
     Active Substance: BENZONATATE
  23. HYDROXYCHLOR [Concomitant]
     Active Substance: HYDROXYCHLOROQUINE
  24. LEVOFLOXACIN. [Concomitant]
     Active Substance: LEVOFLOXACIN
  25. TRAMADOL. [Concomitant]
     Active Substance: TRAMADOL
  26. BREO ELLIPTA [Concomitant]
     Active Substance: FLUTICASONE FUROATE\VILANTEROL TRIFENATATE
  27. GABAPENTIN. [Concomitant]
     Active Substance: GABAPENTIN

REACTIONS (1)
  - Death [None]

NARRATIVE: CASE EVENT DATE: 20180817
